FAERS Safety Report 7513401-X (Version None)
Quarter: 2011Q2

REPORT INFORMATION
  Report Type: 
  Country: None (occurrence: None)
  Receive Date: 20110531
  Receipt Date: 20110526
  Transmission Date: 20111010
  Serious: Yes (Hospitalization, Other)
  Sender: FDA-Public Use
  Company Number: BR-PFIZER INC-2011066752

PATIENT
  Age: 38 Year
  Sex: Female
  Weight: 44 kg

DRUGS (6)
  1. ZYPREXA [Concomitant]
     Indication: DEPRESSION
     Dosage: 10 MG, UNK
  2. AMPLICTIL [Concomitant]
     Indication: DEPRESSION
     Dosage: 100 MG, UNK
  3. OMEPRAZOLE [Concomitant]
     Indication: POLYMEDICATION
     Dosage: 20 MG, UNK
  4. VARENICLINE TARTRATE [Suspect]
     Indication: TOBACCO USER
     Dosage: UNK
     Route: 048
     Dates: start: 20110225, end: 20110101
  5. CLONAZEPAM [Concomitant]
     Indication: DEPRESSION
     Dosage: 2 MG, UNK
  6. VARENICLINE TARTRATE [Suspect]
     Dosage: 1 MG, 2X/DAY
     Route: 048
     Dates: start: 20110101

REACTIONS (6)
  - VOMITING [None]
  - WEIGHT INCREASED [None]
  - DEPRESSION [None]
  - EATING DISORDER [None]
  - NAUSEA [None]
  - CRYING [None]
